FAERS Safety Report 7491201-7 (Version None)
Quarter: 2011Q2

REPORT INFORMATION
  Report Type: 
  Country: None (occurrence: None)
  Receive Date: 20110519
  Receipt Date: 20110510
  Transmission Date: 20111010
  Serious: Yes (Other)
  Sender: FDA-Public Use
  Company Number: US-SANOFI-AVENTIS-2011SA029293

PATIENT
  Age: 64 Year
  Sex: Female

DRUGS (5)
  1. SOLOSTAR [Suspect]
  2. DIOVAN HCT [Concomitant]
     Indication: BLOOD PRESSURE
  3. COUMADIN [Concomitant]
  4. LANTUS [Suspect]
     Dosage: DOSE:50 UNIT(S)
     Route: 058
  5. VERPAMIL HCL [Concomitant]
     Indication: ATRIAL FIBRILLATION

REACTIONS (4)
  - HYPOGLYCAEMIA [None]
  - HYPERHIDROSIS [None]
  - BREAST CANCER STAGE I [None]
  - TREMOR [None]
